FAERS Safety Report 15089180 (Version 2)
Quarter: 2018Q3

REPORT INFORMATION
  Report Type: Spontaneous
  Country: US (occurrence: US)
  Receive Date: 20180629
  Receipt Date: 20180907
  Transmission Date: 20181010
  Serious: No
  Sender: FDA-Public Use
  Company Number: US-SA-2018SA167951

PATIENT
  Age: 38 Year
  Sex: Female

DRUGS (1)
  1. AUBAGIO [Suspect]
     Active Substance: TERIFLUNOMIDE
     Indication: MULTIPLE SCLEROSIS
     Dosage: 14 MG, QD
     Route: 048
     Dates: start: 2018

REACTIONS (8)
  - Malaise [Unknown]
  - Gait disturbance [Unknown]
  - Fungal infection [Unknown]
  - Hypoaesthesia [Unknown]
  - Paraesthesia [Unknown]
  - Drug dose omission [Unknown]
  - Pain in extremity [Unknown]
  - Burning sensation [Unknown]
